FAERS Safety Report 6093003-5 (Version None)
Quarter: 2009Q1

REPORT INFORMATION
  Report Type: 
  Country: None (occurrence: None)
  Receive Date: 20090224
  Receipt Date: 20090216
  Transmission Date: 20090719
  Serious: Yes (Life-Threatening, Hospitalization)
  Sender: FDA-Public Use
  Company Number: 20096092

PATIENT
  Sex: Female

DRUGS (1)
  1. LIORESAL [Suspect]
     Indication: MUSCLE SPASTICITY
     Dosage: 300.1 MCG, DAILY, INTRATHECAL
     Route: 037

REACTIONS (8)
  - COGNITIVE DISORDER [None]
  - DEPRESSED LEVEL OF CONSCIOUSNESS [None]
  - DIZZINESS [None]
  - MALAISE [None]
  - MEDICAL DEVICE COMPLICATION [None]
  - OVERDOSE [None]
  - SOMNOLENCE [None]
  - WEIGHT INCREASED [None]
